FAERS Safety Report 8785195 (Version 2)
Quarter: 2014Q2

REPORT INFORMATION
  Report Type: Spontaneous
  Country: US (occurrence: US)
  Receive Date: 20120914
  Receipt Date: 20131018
  Transmission Date: 20141212
  Serious: Yes (Other)
  Sender: FDA-Public Use
  Company Number: US-ASTRAZENECA-2012SE64593

PATIENT
  Age: 52 Year
  Sex: Female

DRUGS (6)
  1. SEROQUEL [Suspect]
     Indication: BIPOLAR DISORDER
     Route: 048
  2. LUNESTA [Concomitant]
     Route: 048
  3. SYNTHROID [Concomitant]
  4. ABILIFY [Concomitant]
     Dosage: 50
  5. LOPRESSOR [Concomitant]
  6. CIMETIDINE [Concomitant]

REACTIONS (6)
  - Hemiparesis [Unknown]
  - Parkinson^s disease [Unknown]
  - Confusional state [Unknown]
  - Gait deviation [Unknown]
  - Musculoskeletal stiffness [Unknown]
  - Tremor [Unknown]
